FAERS Safety Report 25221899 (Version 1)
Quarter: 2025Q2

REPORT INFORMATION
  Report Type: Report from Study
  Country: FR (occurrence: FR)
  Receive Date: 20250421
  Receipt Date: 20250421
  Transmission Date: 20250716
  Serious: Yes (Death)
  Sender: BIOGEN
  Company Number: FR-BIOGEN-2023BI01204564

PATIENT
  Age: 61 Year
  Sex: Female
  Weight: 48 kg

DRUGS (6)
  1. TOFERSEN [Suspect]
     Active Substance: TOFERSEN
     Indication: Amyotrophic lateral sclerosis
     Route: 050
     Dates: start: 20230329
  2. TOFERSEN [Suspect]
     Active Substance: TOFERSEN
     Route: 050
     Dates: start: 20230412
  3. TOFERSEN [Suspect]
     Active Substance: TOFERSEN
     Route: 050
     Dates: start: 20230426
  4. TOFERSEN [Suspect]
     Active Substance: TOFERSEN
     Route: 050
     Dates: start: 20230524
  5. TOFERSEN [Suspect]
     Active Substance: TOFERSEN
     Route: 050
     Dates: end: 20240517
  6. RILUZOLE [Concomitant]
     Active Substance: RILUZOLE
     Indication: Amyotrophic lateral sclerosis
     Route: 050
     Dates: start: 20221209

REACTIONS (8)
  - Amyotrophic lateral sclerosis [Fatal]
  - Sciatica [Recovered/Resolved]
  - CSF protein increased [Not Recovered/Not Resolved]
  - Cholestasis [Recovered/Resolved]
  - CSF cell count abnormal [Unknown]
  - CSF glucose abnormal [Unknown]
  - Full blood count abnormal [Unknown]
  - Blood creatinine abnormal [Unknown]

NARRATIVE: CASE EVENT DATE: 20230329
